FAERS Safety Report 5120207-8 (Version None)
Quarter: 2006Q4

REPORT INFORMATION
  Report Type: 
  Country: None (occurrence: None)
  Receive Date: 20061002
  Receipt Date: 20061002
  Transmission Date: 20070319
  Serious: Yes (Life-Threatening)
  Sender: FDA-Public Use
  Company Number: None

PATIENT
  Age: 75 Year
  Sex: Female
  Weight: 55 kg

DRUGS (4)
  1. COMTAN [Suspect]
     Dates: start: 20060910, end: 20060929
  2. TYLENOL (CAPLET) [Suspect]
     Dates: start: 20060927, end: 20060927
  3. COMTAN [Concomitant]
  4. TYLENOL [Concomitant]

REACTIONS (5)
  - AGITATION [None]
  - CONVERSION DISORDER [None]
  - DEPERSONALISATION [None]
  - HALLUCINATION [None]
  - REGRESSIVE BEHAVIOUR [None]
